FAERS Safety Report 9550939 (Version 14)
Quarter: 2015Q1

REPORT INFORMATION
  Report Type: Report from Study
  Country: US (occurrence: US)
  Receive Date: 20130924
  Receipt Date: 20150108
  Transmission Date: 20150721
  Serious: Yes (Hospitalization, Other)
  Sender: FDA-Public Use
  Company Number: US-SANOFI-AVENTIS-2013SA049657

PATIENT
  Age: 67 Year
  Sex: Female
  Weight: 118.8 kg

DRUGS (2)
  1. AUBAGIO [Suspect]
     Active Substance: TERIFLUNOMIDE
     Indication: MULTIPLE SCLEROSIS
     Route: 048
     Dates: start: 20130718
  2. AUBAGIO [Suspect]
     Active Substance: TERIFLUNOMIDE
     Indication: MULTIPLE SCLEROSIS
     Route: 048
     Dates: start: 20130404, end: 20130715

REACTIONS (26)
  - Multiple sclerosis relapse [Recovered/Resolved]
  - Blood potassium decreased [Unknown]
  - Bronchitis [Recovered/Resolved]
  - Cognitive disorder [Not Recovered/Not Resolved]
  - Gastric polyps [Unknown]
  - Fall [Unknown]
  - Nodule [Not Recovered/Not Resolved]
  - Fungal infection [Not Recovered/Not Resolved]
  - Urinary incontinence [Unknown]
  - Anxiety [Unknown]
  - Dysphagia [Unknown]
  - Infection [Unknown]
  - Blood pressure increased [Unknown]
  - Influenza like illness [Unknown]
  - Blood cholesterol increased [Unknown]
  - Oropharyngeal pain [Recovered/Resolved]
  - Back pain [Recovering/Resolving]
  - Abscess [Unknown]
  - Alopecia [Not Recovered/Not Resolved]
  - Lipoma [Unknown]
  - Gastrooesophageal reflux disease [Unknown]
  - Arthralgia [Unknown]
  - Gastrointestinal viral infection [Recovered/Resolved]
  - Depression [Unknown]
  - Tremor [Unknown]
  - Pharyngeal disorder [Unknown]

NARRATIVE: CASE EVENT DATE: 20130714
